FAERS Safety Report 12233715 (Version 1)
Quarter: 2016Q2

REPORT INFORMATION
  Report Type: Spontaneous
  Country: US (occurrence: None)
  Receive Date: 20160401
  Receipt Date: 20160401
  Transmission Date: 20160815
  Serious: Yes (Hospitalization)
  Sender: FDA-Public Use
  Company Number: None

PATIENT
  Age: 34 Year
  Sex: Male
  Weight: 63.05 kg

DRUGS (1)
  1. PYRANTEL 144 MG/CC [Suspect]
     Active Substance: PYRANTEL
     Indication: NEMATODIASIS
     Dosage: 3 TSP ONCE ORAL
     Route: 048
     Dates: start: 20160302

REACTIONS (1)
  - Hepatic failure [None]

NARRATIVE: CASE EVENT DATE: 20160318
